FAERS Safety Report 8012377-9 (Version None)
Quarter: 2011Q4

REPORT INFORMATION
  Report Type: 
  Country: None (occurrence: None)
  Receive Date: 20111228
  Receipt Date: 20111227
  Transmission Date: 20120403
  Serious: Yes (Other)
  Sender: FDA-Public Use
  Company Number: US-AMGEN-USASP2011025455

PATIENT
  Age: 42 Year
  Sex: Female
  Weight: 63.946 kg

DRUGS (5)
  1. CORTICOSTEROIDS [Concomitant]
  2. CIPRO [Concomitant]
     Indication: URINARY TRACT INFECTION
     Dosage: 500 MG, BID
     Route: 048
  3. PLAQUENIL [Concomitant]
     Indication: SYSTEMIC LUPUS ERYTHEMATOSUS
     Route: 048
  4. NPLATE [Suspect]
     Indication: IDIOPATHIC THROMBOCYTOPENIC PURPURA
     Dosage: 10 MUG/KG, UNK
     Route: 058
     Dates: start: 20081117, end: 20100123
  5. FELODIPINE [Concomitant]
     Indication: HYPERTENSION
     Dosage: 10 MG, QD
     Route: 048

REACTIONS (4)
  - WHITE BLOOD CELL COUNT INCREASED [None]
  - PLATELET COUNT DECREASED [None]
  - HAEMATOCRIT INCREASED [None]
  - THERAPEUTIC RESPONSE DECREASED [None]
